FAERS Safety Report 4930133-2 (Version None)
Quarter: 2006Q1

REPORT INFORMATION
  Report Type: 
  Country: None (occurrence: None)
  Receive Date: 20060224
  Receipt Date: 20060215
  Transmission Date: 20060701
  Serious: Yes (Disabling, Other)
  Sender: FDA-Public Use
  Company Number: USA-2006-0023423

PATIENT
  Age: 53 Year
  Sex: Male
  Weight: 82.5 kg

DRUGS (5)
  1. OXYCONTIN [Suspect]
     Indication: LUMBAR HERNIA
     Dosage: 40 MG, Q12H,
     Dates: start: 20051205, end: 20060103
  2. XANAX [Concomitant]
  3. TOPROL-XL [Concomitant]
  4. SOMA [Concomitant]
  5. ROXICODONE [Concomitant]

REACTIONS (2)
  - SUICIDAL IDEATION [None]
  - SUICIDE ATTEMPT [None]
